FAERS Safety Report 4678567-8 (Version None)
Quarter: 2005Q2

REPORT INFORMATION
  Report Type: 
  Country: None (occurrence: None)
  Receive Date: 20050531
  Receipt Date: 20050531
  Transmission Date: 20051028
  Serious: Yes (Other)
  Sender: FDA-Public Use
  Company Number: None

PATIENT
  Age: 22 Year
  Sex: Female

DRUGS (13)
  1. ULTRAVIST 240 [Suspect]
     Indication: DIAGNOSTIC PROCEDURE
     Dosage: 55 ML IV
     Route: 042
     Dates: start: 20050502
  2. ULTRAVIST 240 [Suspect]
     Indication: FISTULA
     Dosage: 55 ML IV
     Route: 042
     Dates: start: 20050502
  3. ULTRAVIST 240 [Suspect]
     Indication: RENAL FAILURE CHRONIC
     Dosage: 55 ML IV
     Route: 042
     Dates: start: 20050502
  4. RENAGEL [Concomitant]
  5. PROTONIX [Concomitant]
  6. PHOSLO [Concomitant]
  7. METOPROLOL [Concomitant]
  8. PHENERGAN [Concomitant]
  9. SINEMET [Concomitant]
  10. QUININE [Concomitant]
  11. HYDROXYZINE [Concomitant]
  12. CIPRO [Interacting]
  13. DIGOXIN [Concomitant]

REACTIONS (6)
  - ERYTHEMA [None]
  - OXYGEN SATURATION DECREASED [None]
  - POST PROCEDURAL COMPLICATION [None]
  - PRURITUS [None]
  - REFUSAL OF TREATMENT BY PATIENT [None]
  - WHEEZING [None]
